FAERS Safety Report 13503673 (Version 1)
Quarter: 2017Q2

REPORT INFORMATION
  Report Type: Spontaneous
  Country: MX (occurrence: MX)
  Receive Date: 20170502
  Receipt Date: 20170502
  Transmission Date: 20170830
  Serious: Yes (Other)
  Sender: FDA-Public Use
  Company Number: MX-PFIZER INC-2017187785

PATIENT
  Age: 62 Year
  Sex: Female

DRUGS (2)
  1. CAPTOPRIL. [Concomitant]
     Active Substance: CAPTOPRIL
     Indication: HYPERTENSION
     Dosage: 12.5 MG, UNK
     Route: 060
  2. NORVASC [Suspect]
     Active Substance: AMLODIPINE BESYLATE
     Indication: HYPERTENSION
     Dosage: 5 MG, 1X/DAY (IN THE MORNING)
     Dates: start: 2005, end: 201701

REACTIONS (3)
  - Hiatus hernia [Unknown]
  - Drug ineffective [Unknown]
  - Blister [Unknown]

NARRATIVE: CASE EVENT DATE: 201608
